FAERS Safety Report 9516125 (Version 2)
Quarter: 2013Q4

REPORT INFORMATION
  Report Type: Spontaneous
  Country: US (occurrence: US)
  Receive Date: 20130911
  Receipt Date: 20131206
  Transmission Date: 20140711
  Serious: Yes (Hospitalization, Other)
  Sender: FDA-Public Use
  Company Number: US-009507513-1309USA002226

PATIENT
  Sex: Female
  Weight: 72.56 kg

DRUGS (1)
  1. NUVARING [Suspect]
     Indication: CONTRACEPTION
     Dosage: UNK
     Route: 067
     Dates: start: 20091201, end: 20091217

REACTIONS (27)
  - Abortion induced [Unknown]
  - Pulmonary embolism [Recovered/Resolved]
  - Maternal exposure before pregnancy [Unknown]
  - Deep vein thrombosis [Unknown]
  - Pulmonary embolism [Unknown]
  - Device dislocation [Unknown]
  - Vena cava filter insertion [Unknown]
  - Uterine dilation and curettage [Unknown]
  - Vena cava filter insertion [Unknown]
  - Nausea [Unknown]
  - Tachycardia [Unknown]
  - Vitamin D deficiency [Unknown]
  - Hypokalaemia [Unknown]
  - Rhinitis allergic [Unknown]
  - Bacterial vaginosis [Unknown]
  - Pyelonephritis [Unknown]
  - Abdominal pain [Unknown]
  - Anaemia [Unknown]
  - Leukocytosis [Unknown]
  - Chlamydial infection [Unknown]
  - Bronchospasm [Unknown]
  - Uterine dilation and curettage [Unknown]
  - Abdominal tenderness [Recovered/Resolved]
  - Right ventricular dysfunction [Unknown]
  - Sinus tachycardia [Unknown]
  - Platelet count decreased [Unknown]
  - Flank pain [Unknown]
